FAERS Safety Report 9979419 (Version 1)
Quarter: 2014Q1

REPORT INFORMATION
  Report Type: Report from Study
  Country: US (occurrence: US)
  Receive Date: 20140306
  Receipt Date: 20140306
  Transmission Date: 20141002
  Serious: No
  Sender: FDA-Public Use
  Company Number: US-ABBVIE-13P-163-1172955-00

PATIENT
  Sex: Male
  Weight: 99.43 kg

DRUGS (12)
  1. HUMIRA [Suspect]
     Indication: PSORIATIC ARTHROPATHY
     Dates: start: 201306, end: 20131001
  2. FENTANYL [Suspect]
     Indication: PAIN
     Dates: start: 2013, end: 2013
  3. FENTANYL [Suspect]
     Dates: start: 2013
  4. MULTIVITAMIN [Concomitant]
     Indication: VITAMIN SUPPLEMENTATION
  5. VITAMIN B12 [Concomitant]
     Indication: VITAMIN SUPPLEMENTATION
  6. METHOTREXATE [Concomitant]
     Indication: PSORIATIC ARTHROPATHY
  7. ISONIAZID [Concomitant]
     Indication: LATENT TUBERCULOSIS
     Dates: start: 2012
  8. DIAZEPAM [Concomitant]
     Indication: OVERDOSE
     Dates: start: 1988
  9. ASPIRIN [Concomitant]
     Indication: PRODUCT USED FOR UNKNOWN INDICATION
  10. NIACIN [Concomitant]
     Indication: BLOOD CHOLESTEROL INCREASED
  11. LYRICA [Concomitant]
     Indication: HYPOAESTHESIA
  12. VITAMIN B6 [Concomitant]
     Indication: VITAMIN SUPPLEMENTATION

REACTIONS (6)
  - Mental impairment [Not Recovered/Not Resolved]
  - Dizziness [Recovered/Resolved]
  - Feeling abnormal [Recovered/Resolved]
  - Pain [Not Recovered/Not Resolved]
  - Depression [Not Recovered/Not Resolved]
  - Psoriasis [Not Recovered/Not Resolved]
